FAERS Safety Report 20702347 (Version 4)
Quarter: 2022Q2

REPORT INFORMATION
  Report Type: Report from Study
  Country: KR (occurrence: KR)
  Receive Date: 20220412
  Receipt Date: 20220429
  Transmission Date: 20220721
  Serious: Yes (Hospitalization)
  Sender: FDA-Public Use
  Company Number: KR-GILEAD-2022-0576875

PATIENT
  Sex: Female
  Weight: 49.7 kg

DRUGS (9)
  1. SACITUZUMAB GOVITECAN [Suspect]
     Active Substance: SACITUZUMAB GOVITECAN
     Indication: Transitional cell carcinoma
     Dosage: 497 MG, Q3WK C1D1
     Route: 042
     Dates: start: 20220324, end: 20220331
  2. CARVEDILOL [Concomitant]
     Active Substance: CARVEDILOL
     Indication: Hypertension
     Dosage: UNK
     Dates: start: 20200427
  3. DUKARB [Concomitant]
     Indication: Hypertension
     Dosage: UNK
     Dates: start: 20211213
  4. OMACOR [Concomitant]
     Active Substance: OMEGA-3-ACID ETHYL ESTERS
     Indication: Hypertension
     Dosage: UNK
     Dates: start: 20200511
  5. GRANDPHEROL [Concomitant]
     Dosage: UNK
     Dates: start: 20200622
  6. DEXTROMETHORPHAN HYDROBROMIDE [Concomitant]
     Active Substance: DEXTROMETHORPHAN HYDROBROMIDE
     Indication: Cough
     Dosage: UNK
     Dates: start: 20220321
  7. ULTRACET [Concomitant]
     Active Substance: ACETAMINOPHEN\TRAMADOL HYDROCHLORIDE
     Indication: Back pain
     Dosage: UNK
     Dates: start: 20220321
  8. MEGACE [Concomitant]
     Active Substance: MEGESTROL ACETATE
     Dosage: UNK
     Dates: start: 20220321
  9. MACPERAN [METOCLOPRAMIDE] [Concomitant]
     Dosage: UNK
     Dates: start: 20220324

REACTIONS (1)
  - Neutropenic colitis [Recovered/Resolved]

NARRATIVE: CASE EVENT DATE: 20220406
